FAERS Safety Report 8621572-7 (Version None)
Quarter: 2012Q3

REPORT INFORMATION
  Report Type: 
  Country: None (occurrence: None)
  Receive Date: 20120825
  Receipt Date: 20120816
  Transmission Date: 20120928
  Serious: Yes (Hospitalization, Disabling)
  Sender: FDA-Public Use
  Company Number: GB-ACCORD-014457

PATIENT
  Age: 47 Year
  Sex: Male

DRUGS (8)
  1. AUGMENTIN '500' [Concomitant]
     Route: 042
     Dates: start: 20120702, end: 20120709
  2. INVESTIGATIONAL DRUG [Suspect]
     Dosage: DEFINITION OF THE INTERVAL: CYCLICAL
     Route: 023
     Dates: start: 20120525, end: 20120621
  3. ORAMORPH SR [Concomitant]
     Indication: PAIN
     Dosage: DEFINITION OF THE INTERVAL: AS NECESSARY
     Route: 048
  4. METOCLOPRAMIDE [Concomitant]
     Indication: NAUSEA
     Route: 048
  5. GEMCITABINE HYDROCHLORIDE [Suspect]
     Dosage: DEFINITION OF INTERVAL:CYCLICAL
     Route: 042
     Dates: start: 20120525, end: 20120621
  6. BISACODYL [Concomitant]
     Indication: CONSTIPATION
     Route: 048
  7. MS CONTIN [Concomitant]
     Indication: PAIN
     Route: 048
  8. OMEPRAZOLE [Concomitant]
     Indication: DUODENOGASTRIC REFLUX
     Route: 048

REACTIONS (1)
  - CEREBELLAR INFARCTION [None]
